FAERS Safety Report 24960385 (Version 1)
Quarter: 2025Q1

REPORT INFORMATION
  Report Type: Spontaneous
  Country: US (occurrence: None)
  Receive Date: 20250210
  Receipt Date: 20250210
  Transmission Date: 20250408
  Serious: Yes (Other)
  Sender: FDA-CTU
  Company Number: None

PATIENT
  Age: 35 Year
  Sex: Female

DRUGS (1)
  1. LEQVIO [Suspect]
     Active Substance: INCLISIRAN SODIUM

REACTIONS (5)
  - Injection site rash [None]
  - Injection site vesicles [None]
  - Pain [None]
  - Chest pain [None]
  - Brain fog [None]

NARRATIVE: CASE EVENT DATE: 20250210
